FAERS Safety Report 7472331-2 (Version None)
Quarter: 2011Q1

REPORT INFORMATION
  Report Type: 
  Country: None (occurrence: None)
  Receive Date: 20110302
  Receipt Date: 20101101
  Transmission Date: 20110831
  Serious: Yes (Hospitalization, Other)
  Sender: FDA-Public Use
  Company Number: 163-21880-10100281

PATIENT
  Age: 77 Year
  Sex: Female
  Weight: 49.8957 kg

DRUGS (14)
  1. DEXAMETHASONE [Concomitant]
  2. PAROXETINE HCL [Concomitant]
  3. HYDROCODONE (HYDROCODONE) [Concomitant]
  4. MULTIVITAMIN [Concomitant]
  5. NYSTATIN [Concomitant]
  6. ASPIRIN [Concomitant]
  7. REVLIMID [Suspect]
     Indication: MULTIPLE MYELOMA
     Dosage: 10 MG, 1 IN 1 D, PO
     Route: 048
     Dates: start: 20090401, end: 20100715
  8. LIPITOR [Concomitant]
  9. AREDIA [Concomitant]
  10. VITAMIN D [Concomitant]
  11. PANTOPRAZOLE [Concomitant]
  12. GABAPENTIN [Concomitant]
  13. NORVASC [Concomitant]
  14. LASIX (FUROMIDE) [Concomitant]

REACTIONS (14)
  - DEHYDRATION [None]
  - VOMITING [None]
  - DIZZINESS [None]
  - SOMNOLENCE [None]
  - OEDEMA PERIPHERAL [None]
  - RENAL FAILURE [None]
  - TREMOR [None]
  - HYPOTENSION [None]
  - NAUSEA [None]
  - DIARRHOEA [None]
  - ALVEOLAR OSTEITIS [None]
  - RESPIRATORY TRACT INFECTION [None]
  - CONFUSIONAL STATE [None]
  - SYNOVIAL CYST [None]
